FAERS Safety Report 4297321-2 (Version None)
Quarter: 2004Q1

REPORT INFORMATION
  Report Type: 
  Country: None (occurrence: None)
  Receive Date: 20040213
  Receipt Date: 20040206
  Transmission Date: 20041129
  Serious: No
  Sender: FDA-Public Use
  Company Number: HQWYE731330JAN04

PATIENT
  Age: 74 Year
  Sex: Male

DRUGS (5)
  1. CODAREX (AMIODARONE, TABLET) [Suspect]
     Indication: ATRIAL FIBRILLATION
     Dosage: 200 MG 1X PER 3 DAY
     Route: 048
     Dates: start: 20010401, end: 20010531
  2. CODAREX (AMIODARONE, TABLET) [Suspect]
     Indication: ATRIAL FIBRILLATION
     Dosage: 200 MG 1X PER 3 DAY
     Route: 048
     Dates: start: 20010601, end: 20010801
  3. PHENPROCOUMON (PHENPROCOUMON) [Concomitant]
  4. ACETYLDIGOXIN (ACETYLDIGOXIN) [Concomitant]
  5. ZENTOPRIL (PHENYTOIN) [Concomitant]

REACTIONS (12)
  - INFARCTION [None]
  - IRIS DISORDER [None]
  - KERATOPATHY [None]
  - LENTICULAR OPACITIES [None]
  - OPTIC ATROPHY [None]
  - OPTIC ISCHAEMIC NEUROPATHY [None]
  - OPTIC NEUROPATHY [None]
  - PAPILLOEDEMA [None]
  - RETINAL HAEMORRHAGE [None]
  - SCOTOMA [None]
  - VISUAL ACUITY REDUCED [None]
  - VISUAL FIELD DEFECT [None]
